FAERS Safety Report 21431981 (Version 4)
Quarter: 2022Q4

REPORT INFORMATION
  Report Type: Spontaneous
  Country: NL (occurrence: NL)
  Receive Date: 20221009
  Receipt Date: 20221214
  Transmission Date: 20230112
  Serious: Yes (Hospitalization)
  Sender: FDA-Public Use
  Company Number: None

PATIENT
  Age: 62 Year
  Sex: Male

DRUGS (5)
  1. BISOPROLOL [Suspect]
     Active Substance: BISOPROLOL
     Indication: Atrial fibrillation
     Dosage: BISOPROLOL TABLET 2.5MG / BRAND NAME NOT SPECIFIED, FREQUENCY TIME : 1 DAY, THERAPY START DATE AND E
  2. SIMVASTATIN [Suspect]
     Active Substance: SIMVASTATIN
     Indication: Disease risk factor
     Dosage: 40 MILLIGRAM DAILY; SIMVASTATINE TABLET FO 40MG / BRAND NAME NOT SPECIFIED, THERAPY END DATE: ASKU
     Route: 065
     Dates: start: 20201201
  3. RAMIPRIL [Suspect]
     Active Substance: RAMIPRIL
     Indication: Hypertension
     Dosage: 2.5 MILLIGRAM DAILY; RAMIPRIL CAPSULE 2,5MG / BRAND NAME NOT SPECIFIED, THERAPY END DATE: ASKU
     Route: 065
     Dates: start: 20210301
  4. ASTRAZENECA COVID-19 VACCINE [Suspect]
     Active Substance: AZD-1222
     Indication: COVID-19 immunisation
     Dosage: COVID-19 VACCIN ASTRAZENECA INJVLST / COVID-19 VACCIN ASTRAZENECA INJVLST, END DATE : ASKU
     Dates: start: 20210420
  5. RIVAROXABAN [Concomitant]
     Active Substance: RIVAROXABAN
     Indication: Product used for unknown indication
     Dosage: RIVAROXABAN TABLET 20MG / BRAND NAME NOT SPECIFIED, THERAPY START AND END DATE: ASKU

REACTIONS (2)
  - Guillain-Barre syndrome [Unknown]
  - Myalgia [Unknown]

NARRATIVE: CASE EVENT DATE: 20210427
